FAERS Safety Report 7413806-1 (Version None)
Quarter: 2011Q2

REPORT INFORMATION
  Report Type: 
  Country: None (occurrence: None)
  Receive Date: 20110413
  Receipt Date: 20110405
  Transmission Date: 20111010
  Serious: Yes (Hospitalization, Disabling)
  Sender: FDA-Public Use
  Company Number: US-MERCK-1104USA00702

PATIENT
  Sex: Female

DRUGS (2)
  1. FOSAMAX PLUS D [Suspect]
     Indication: OSTEOPENIA
     Route: 048
     Dates: start: 20060905, end: 20100801
  2. FOSAMAX [Suspect]
     Indication: OSTEOPENIA
     Route: 048
     Dates: start: 20020101

REACTIONS (6)
  - FEMUR FRACTURE [None]
  - SCOLIOSIS [None]
  - FRACTURE DELAYED UNION [None]
  - IMPAIRED HEALING [None]
  - BONE DENSITY DECREASED [None]
  - FOOT FRACTURE [None]
